FAERS Safety Report 15215140 (Version 2)
Quarter: 2018Q4

REPORT INFORMATION
  Report Type: Spontaneous
  Country: US (occurrence: US)
  Receive Date: 20180730
  Receipt Date: 20181129
  Transmission Date: 20190204
  Serious: Yes (Other)
  Sender: FDA-Public Use
  Company Number: US-PFIZER INC-2018303402

PATIENT
  Age: 46 Year
  Sex: Male

DRUGS (3)
  1. LYRICA [Suspect]
     Active Substance: PREGABALIN
     Indication: FIBROMYALGIA
     Dosage: 150 MG, 3X/DAY
     Route: 048
     Dates: end: 201807
  2. LYRICA [Suspect]
     Active Substance: PREGABALIN
     Indication: SOMNOLENCE
     Dosage: 150 MG, 2X/DAY
     Dates: start: 201807, end: 2018
  3. LYRICA [Suspect]
     Active Substance: PREGABALIN
     Dosage: 150 MG, 3X/DAY
     Route: 048

REACTIONS (13)
  - Nervousness [Not Recovered/Not Resolved]
  - Anxiety [Unknown]
  - Disturbance in attention [Unknown]
  - Back pain [Not Recovered/Not Resolved]
  - Feeling hot [Unknown]
  - Intentional product use issue [Unknown]
  - Feeling of despair [Unknown]
  - Endocrine disorder [Unknown]
  - Temperature intolerance [Not Recovered/Not Resolved]
  - Poor quality sleep [Unknown]
  - Panic attack [Not Recovered/Not Resolved]
  - Mental impairment [Unknown]
  - Dyspnoea [Unknown]

NARRATIVE: CASE EVENT DATE: 2018
